FAERS Safety Report 4640742-6 (Version None)
Quarter: 2005Q2

REPORT INFORMATION
  Report Type: 
  Country: None (occurrence: None)
  Receive Date: 20050419
  Receipt Date: 20050315
  Transmission Date: 20051028
  Serious: No
  Sender: FDA-Public Use
  Company Number: 10521

PATIENT
  Sex: Female

DRUGS (3)
  1. CISPLATIN [Suspect]
     Indication: UTERINE CANCER
     Dosage: 50 MG/M2 FREQ UNK IV
     Route: 042
  2. BLEOMYCIN [Suspect]
     Indication: UTERINE CANCER
     Dosage: 10 MG FREQ UNK IV
     Route: 042
  3. IFOSFAMIDE [Suspect]
     Indication: UTERINE CANCER
     Dosage: 1.5 G FREQ UNK IV
     Route: 042

REACTIONS (2)
  - POST PROCEDURAL COMPLICATION [None]
  - RENAL FAILURE ACUTE [None]
